FAERS Safety Report 25210025 (Version 1)
Quarter: 2025Q2

REPORT INFORMATION
  Report Type: Spontaneous
  Country: CN (occurrence: CN)
  Receive Date: 20250417
  Receipt Date: 20250417
  Transmission Date: 20250717
  Serious: Yes (Other)
  Sender: PFIZER
  Company Number: CN-PFIZER INC-PV202500043460

PATIENT
  Age: 29 Year
  Sex: Female
  Weight: 79 kg

DRUGS (2)
  1. LINEZOLID [Interacting]
     Active Substance: LINEZOLID
     Route: 048
  2. LEVOFLOXACIN [Concomitant]
     Active Substance: LEVOFLOXACIN
     Route: 048

REACTIONS (3)
  - Drug interaction [Unknown]
  - Pyrexia [Unknown]
  - Chills [Unknown]
